FAERS Safety Report 11499930 (Version 6)
Quarter: 2017Q4

REPORT INFORMATION
  Report Type: Spontaneous
  Country: FR (occurrence: FR)
  Receive Date: 20150914
  Receipt Date: 20171115
  Transmission Date: 20180320
  Serious: Yes (Death, Hospitalization)
  Sender: FDA-Public Use
  Company Number: FR-ROCHE-1630686

PATIENT
  Age: 63 Year
  Sex: Female

DRUGS (2)
  1. XELODA [Suspect]
     Active Substance: CAPECITABINE
     Dosage: RE-INTRODUCED
     Route: 048
  2. XELODA [Suspect]
     Active Substance: CAPECITABINE
     Indication: BREAST CANCER METASTATIC
     Dosage: 14 DAYS OUT OF 21
     Route: 048
     Dates: start: 201109, end: 201209

REACTIONS (3)
  - Anxiety [Not Recovered/Not Resolved]
  - Death [Fatal]
  - Skin reaction [Unknown]

NARRATIVE: CASE EVENT DATE: 201208
